FAERS Safety Report 19736194 (Version 1)
Quarter: 2021Q3

REPORT INFORMATION
  Report Type: Spontaneous
  Country: US (occurrence: US)
  Receive Date: 20210823
  Receipt Date: 20210823
  Transmission Date: 20211014
  Serious: Yes (Other)
  Sender: FDA-Public Use
  Company Number: NVSC2021US187399

PATIENT
  Age: 62 Year
  Sex: Male

DRUGS (2)
  1. RANITIDINE. [Suspect]
     Active Substance: RANITIDINE
     Indication: DYSPEPSIA
     Dosage: 150 TO 300 MG, QD
     Route: 065
     Dates: end: 201908
  2. RANITIDINE. [Suspect]
     Active Substance: RANITIDINE
     Indication: DYSPEPSIA
     Dosage: 150 TO 300 MG, QD
     Route: 065
     Dates: end: 201908

REACTIONS (3)
  - Gastric cancer stage I [Recovering/Resolving]
  - Bladder cancer [Recovering/Resolving]
  - Lung carcinoma cell type unspecified stage I [Recovering/Resolving]

NARRATIVE: CASE EVENT DATE: 20120101
